FAERS Safety Report 9328700 (Version 1)
Quarter: 2013Q2

REPORT INFORMATION
  Report Type: Spontaneous
  Country: US (occurrence: US)
  Receive Date: 20130604
  Receipt Date: 20130604
  Transmission Date: 20140414
  Serious: No
  Sender: FDA-Public Use
  Company Number: US-SANOFI-AVENTIS-2013SA010114

PATIENT
  Age: 77 Year
  Sex: Male

DRUGS (2)
  1. SOLOSTAR [Suspect]
     Dosage: MORNING
  2. LANTUS SOLOSTAR [Suspect]
     Dosage: MORNING

REACTIONS (1)
  - Injury associated with device [Unknown]
